FAERS Safety Report 6758094-4 (Version None)
Quarter: 2010Q2

REPORT INFORMATION
  Report Type: 
  Country: None (occurrence: None)
  Receive Date: 20100607
  Receipt Date: 20100527
  Transmission Date: 20101027
  Serious: Yes (Life-Threatening, Hospitalization, Other)
  Sender: FDA-Public Use
  Company Number: JP-JNJFOC-20100405531

PATIENT
  Sex: Female

DRUGS (10)
  1. REMICADE [Suspect]
     Indication: RHEUMATOID ARTHRITIS
     Dosage: 2 TOTAL INFUSIONS
     Route: 042
  2. REMICADE [Suspect]
     Route: 042
  3. ENBREL [Suspect]
     Indication: RHEUMATOID ARTHRITIS
     Route: 058
  4. VOLTAREN [Suspect]
     Indication: DRUG USE FOR UNKNOWN INDICATION
     Route: 048
  5. STEROIDS NOS [Concomitant]
     Route: 065
  6. RHEUMATREX [Concomitant]
     Indication: RHEUMATOID ARTHRITIS
     Route: 048
  7. RIMATIL [Concomitant]
     Indication: RHEUMATOID ARTHRITIS
     Route: 048
  8. FOSAMAC [Concomitant]
     Route: 048
  9. PREDONINE [Concomitant]
     Route: 048
  10. FOLIAMIN [Concomitant]
     Route: 048

REACTIONS (4)
  - COLITIS ULCERATIVE [None]
  - DRUG INEFFECTIVE [None]
  - GASTROINTESTINAL AMYLOIDOSIS [None]
  - SHOCK [None]
